FAERS Safety Report 4576766-7 (Version None)
Quarter: 2005Q1

REPORT INFORMATION
  Report Type: 
  Country: None (occurrence: None)
  Receive Date: 20050207
  Receipt Date: 20050127
  Transmission Date: 20050727
  Serious: No
  Sender: FDA-Public Use
  Company Number: 05H-163-0288446-00

PATIENT
  Age: 28 Year
  Sex: Female

DRUGS (6)
  1. MORPHINE SULFATE [Suspect]
     Indication: ANAESTHESIA
     Dosage: 0.1 MG, INTRATHECAL
     Route: 037
  2. BUPIVACAINE IN DEXTROSE INJECTION (BUPIVACAINE HCL IN DEXTROSE INJECTI [Suspect]
     Indication: ANAESTHESIA
     Dosage: 1.25 MG, SPINAL EPIDURAL
     Route: 008
  3. LIDOCAINE HYDROCHLORIDE 2% INJECTION (LIDOCAINE HYDROCHLORIDE) (LIDOCA [Suspect]
     Indication: NERVE BLOCK
     Dosage: 20 ML, EPIDURAL
     Route: 008
  4. FENTANYL [Suspect]
     Indication: ANAESTHESIA
     Dosage: SEE IMAGE
     Route: 008
  5. FENTANYL [Suspect]
     Indication: NERVE BLOCK
     Dosage: SEE IMAGE
     Route: 008
  6. BUPIVACAINE [Suspect]
     Indication: ANAESTHESIA

REACTIONS (4)
  - CAESAREAN SECTION [None]
  - DRUG EXPOSURE DURING PREGNANCY [None]
  - FAILED FORCEPS DELIVERY [None]
  - HYPOTENSION [None]
